FAERS Safety Report 5131136-8 (Version None)
Quarter: 2006Q3

REPORT INFORMATION
  Report Type: 
  Country: None (occurrence: None)
  Receive Date: 20060830
  Receipt Date: 20060619
  Transmission Date: 20061208
  Serious: Yes (Hospitalization)
  Sender: FDA-Public Use
  Company Number: CIP06000597

PATIENT
  Age: 53 Year
  Sex: Female
  Weight: 98 kg

DRUGS (9)
  1. ASACOL [Suspect]
     Indication: CROHN'S DISEASE
     Dosage: 1200 MG THREE TIMES DAILY, ORAL
     Route: 048
     Dates: start: 20060201, end: 20060101
  2. BACTRIM DS [Concomitant]
  3. PREDNISONE TAB [Concomitant]
  4. EFFEXOR [Concomitant]
  5. HYZAAR [Concomitant]
  6. PROTONIX [Concomitant]
  7. ZOCOR [Concomitant]
  8. INSULIN (INSULIN) [Concomitant]
  9. TOPROL-XL [Concomitant]

REACTIONS (1)
  - OEDEMATOUS PANCREATITIS [None]
